APPROVED DRUG PRODUCT: WYAMINE SULFATE
Active Ingredient: MEPHENTERMINE SULFATE
Strength: EQ 30MG BASE/ML
Dosage Form/Route: INJECTABLE;INJECTION
Application: N008248 | Product #001
Applicant: BAXTER HEALTHCARE CORP ANESTHESIA CRITICAL CARE
Approved: Approved Prior to Jan 1, 1982 | RLD: No | RS: No | Type: DISCN